FAERS Safety Report 16064228 (Version 1)
Quarter: 2019Q1

REPORT INFORMATION
  Report Type: Report from Study
  Country: AU (occurrence: AU)
  Receive Date: 20190312
  Receipt Date: 20190312
  Transmission Date: 20190418
  Serious: Yes (Hospitalization, Other)
  Sender: FDA-Public Use
  Company Number: AU-JNJFOC-20190125433

PATIENT
  Age: 55 Year
  Sex: Female
  Weight: 85 kg

DRUGS (11)
  1. DAIVOBET [Concomitant]
     Active Substance: BETAMETHASONE DIPROPIONATE\CALCIPOTRIENE
     Indication: SKIN DISORDER
     Route: 065
  2. ESTRADERM [Concomitant]
     Active Substance: ESTRADIOL
     Indication: SKIN DISORDER
     Route: 065
  3. DEXAMETHASONE. [Concomitant]
     Active Substance: DEXAMETHASONE
     Indication: INFLAMMATION
     Route: 065
  4. CORTISONE ACETATE. [Concomitant]
     Active Substance: CORTISONE ACETATE
     Indication: INFLAMMATION
     Route: 065
  5. VITAMIN D [Concomitant]
     Active Substance: CHOLECALCIFEROL
     Indication: VITAMIN D DECREASED
     Route: 030
  6. FLUDROCORTISONE ACETATE. [Concomitant]
     Active Substance: FLUDROCORTISONE ACETATE
     Indication: INFLAMMATION
     Route: 065
  7. CALTRATE [Concomitant]
     Active Substance: CALCIUM CARBONATE
     Indication: BONE DISORDER
     Route: 065
  8. VITAMIN B12 [Concomitant]
     Active Substance: CYANOCOBALAMIN
     Indication: VITAMIN B12 DECREASED
     Route: 030
  9. REMICADE [Suspect]
     Active Substance: INFLIXIMAB
     Indication: CROHN^S DISEASE
     Route: 042
     Dates: start: 20180502
  10. REMICADE [Suspect]
     Active Substance: INFLIXIMAB
     Indication: CROHN^S DISEASE
     Route: 042
     Dates: start: 20180711
  11. DIPROSONE [Concomitant]
     Active Substance: BETAMETHASONE DIPROPIONATE
     Indication: SKIN DISORDER
     Route: 065

REACTIONS (3)
  - Cerebrovascular accident [Unknown]
  - Therapeutic response decreased [Recovered/Resolved]
  - Cytomegalovirus infection [Unknown]

NARRATIVE: CASE EVENT DATE: 201805
